FAERS Safety Report 9890167 (Version 1)
Quarter: 2014Q1

REPORT INFORMATION
  Report Type: Spontaneous
  Country: US (occurrence: US)
  Receive Date: 20140212
  Receipt Date: 20140212
  Transmission Date: 20141002
  Serious: No
  Sender: FDA-Public Use
  Company Number: US-BIOGENIDEC-2014BI011641

PATIENT
  Age: 71 Year
  Sex: Female

DRUGS (5)
  1. TECFIDERA [Suspect]
     Indication: MULTIPLE SCLEROSIS
     Route: 048
  2. ACTONEL [Concomitant]
  3. B12-ACTIVE [Concomitant]
  4. CHELATED MAGNESIUM [Concomitant]
  5. LATANOPROST [Concomitant]

REACTIONS (3)
  - Contusion [Unknown]
  - Fall [Recovered/Resolved]
  - Constipation [Unknown]
